FAERS Safety Report 21756686 (Version 1)
Quarter: 2022Q4

REPORT INFORMATION
  Report Type: Spontaneous
  Country: US (occurrence: None)
  Receive Date: 20221220
  Receipt Date: 20221220
  Transmission Date: 20230113
  Serious: No
  Sender: FDA-Public Use
  Company Number: 2022A394154

PATIENT
  Age: 27974 Day

DRUGS (1)
  1. SYMBICORT [Suspect]
     Active Substance: BUDESONIDE\FORMOTEROL FUMARATE DIHYDRATE
     Indication: Chronic obstructive pulmonary disease
     Dosage: 160-4.5 2 PUFFS IN MORNING AND 2 IN EVENING
     Route: 055

REACTIONS (2)
  - Pain in extremity [Unknown]
  - Device malfunction [Unknown]

NARRATIVE: CASE EVENT DATE: 20221127
